FAERS Safety Report 6545557-X (Version None)
Quarter: 2010Q1

REPORT INFORMATION
  Report Type: 
  Country: None (occurrence: None)
  Receive Date: 20100121
  Receipt Date: 20100115
  Transmission Date: 20100710
  Serious: Yes (Other)
  Sender: FDA-Public Use
  Company Number: DE-ROXANE LABORATORIES, INC.-2010-RO-00042RO

PATIENT

DRUGS (1)
  1. MORPHINE [Suspect]
     Route: 039

REACTIONS (1)
  - ACCIDENTAL OVERDOSE [None]
